FAERS Safety Report 17913952 (Version 1)
Quarter: 2020Q2

REPORT INFORMATION
  Report Type: Spontaneous
  Country: TN (occurrence: TN)
  Receive Date: 20200618
  Receipt Date: 20200618
  Transmission Date: 20200714
  Serious: Yes (Hospitalization, Other)
  Sender: FDA-Public Use
  Company Number: TN-VALIDUS PHARMACEUTICALS LLC-TN-2020VAL000519

PATIENT

DRUGS (1)
  1. CEFOTAXIME SODIUM [Suspect]
     Active Substance: CEFOTAXIME SODIUM
     Indication: ESCHERICHIA BACTERAEMIA
     Dosage: 4 G, QD
     Route: 065

REACTIONS (5)
  - Dyspnoea [Recovering/Resolving]
  - Pathogen resistance [Recovering/Resolving]
  - Haemophilus infection [Recovering/Resolving]
  - Pyrexia [Recovering/Resolving]
  - Drug resistance [Recovering/Resolving]
